FAERS Safety Report 6913472-5 (Version None)
Quarter: 2010Q3

REPORT INFORMATION
  Report Type: 
  Country: None (occurrence: None)
  Receive Date: 20100716
  Receipt Date: 20091109
  Transmission Date: 20110219
  Serious: Yes (Other)
  Sender: FDA-Public Use
  Company Number: 2009276274

PATIENT
  Age: 63 Year
  Sex: Female
  Weight: 57 kg

DRUGS (5)
  1. CELEBREX [Suspect]
     Indication: SPONDYLITIS
     Dosage: 200 MG, 1X/DAY
     Dates: start: 20090821, end: 20090901
  2. SYNTHROID [Concomitant]
  3. DETROL [Concomitant]
  4. FOSAMAX [Concomitant]
  5. CLONAZEPAM [Concomitant]

REACTIONS (1)
  - SKIN LESION [None]
